FAERS Safety Report 22195129 (Version 1)
Quarter: 2023Q2

REPORT INFORMATION
  Report Type: Report from Study
  Country: US (occurrence: US)
  Receive Date: 20230411
  Receipt Date: 20230411
  Transmission Date: 20230722
  Serious: Yes (Other)
  Sender: FDA-Public Use
  Company Number: US-ABBVIE-4723487

PATIENT
  Sex: Male

DRUGS (2)
  1. SKYRIZI [Suspect]
     Active Substance: RISANKIZUMAB-RZAA
     Indication: Psoriasis
     Dosage: FREQUENCY TEXT: WEEK 4, FORM STRENGTH: 150 MILLIGRAM
     Route: 058
     Dates: end: 20230223
  2. SKYRIZI [Suspect]
     Active Substance: RISANKIZUMAB-RZAA
     Dosage: WEEK 0, FORM STRENGTH: 150 MILLIGRAM
     Route: 058
     Dates: start: 20221229, end: 20221229

REACTIONS (1)
  - Liver transplant [Unknown]
